FAERS Safety Report 16829951 (Version 1)
Quarter: 2019Q3

REPORT INFORMATION
  Report Type: Spontaneous
  Country: CA (occurrence: CA)
  Receive Date: 20190919
  Receipt Date: 20190919
  Transmission Date: 20191005
  Serious: Yes (Other)
  Sender: FDA-Public Use
  Company Number: CA-ALLERGAN-1937873US

PATIENT
  Sex: Female

DRUGS (1)
  1. TEARS PLUS [Suspect]
     Active Substance: POLYVINYL ALCOHOL\POVIDONE
     Indication: DRY EYE

REACTIONS (7)
  - Intentional product misuse [Unknown]
  - Eye discharge [Unknown]
  - Dry eye [Unknown]
  - Eye irritation [Unknown]
  - Cataract operation [Unknown]
  - Intraocular pressure increased [Unknown]
  - Eye disorder [Unknown]

NARRATIVE: CASE EVENT DATE: 2018
